FAERS Safety Report 14690589 (Version 1)
Quarter: 2018Q1

REPORT INFORMATION
  Report Type: Spontaneous
  Country: US (occurrence: US)
  Receive Date: 20180328
  Receipt Date: 20180328
  Transmission Date: 20180509
  Serious: No
  Sender: FDA-Public Use
  Company Number: US-TARO-2018TAR00065

PATIENT
  Age: 80 Year
  Sex: Female

DRUGS (2)
  1. FLUOROURACIL TOPICAL CREAM USP 5% [Suspect]
     Active Substance: FLUOROURACIL
     Indication: POROKERATOSIS
     Dosage: UNK, 2X/DAY
     Route: 061
  2. ALDARA [Suspect]
     Active Substance: IMIQUIMOD
     Indication: POROKERATOSIS
     Dosage: UNK, 1X/DAY
     Route: 061

REACTIONS (1)
  - Drug ineffective [Recovered/Resolved]
